FAERS Safety Report 9885213 (Version 3)
Quarter: 2014Q2

REPORT INFORMATION
  Report Type: Spontaneous
  Country: US (occurrence: US)
  Receive Date: 20140210
  Receipt Date: 20140501
  Transmission Date: 20141212
  Serious: No
  Sender: FDA-Public Use
  Company Number: US-PFIZER INC-2014033519

PATIENT
  Age: 56 Year
  Sex: Female
  Weight: 68.03 kg

DRUGS (2)
  1. ZOLOFT [Suspect]
     Indication: DEPRESSION
     Dosage: 100 MG, UNK
  2. TRAMADOL HYDROCHLORIDE [Interacting]
     Indication: PAIN IN EXTREMITY
     Dosage: 650 MG, AS NEEDED

REACTIONS (3)
  - Drug interaction [Unknown]
  - Depression [Unknown]
  - Drug ineffective [Unknown]
